FAERS Safety Report 4522991-0 (Version None)
Quarter: 2004Q4

REPORT INFORMATION
  Report Type: 
  Country: None (occurrence: None)
  Receive Date: 20041208
  Receipt Date: 20041125
  Transmission Date: 20050328
  Serious: Yes (Hospitalization)
  Sender: FDA-Public Use
  Company Number: 04P-056-0281691-00

PATIENT
  Age: 48 Year
  Sex: Male

DRUGS (3)
  1. MAVIK [Suspect]
     Dosage: 2 MG, 1 IN 1 D, PER ORAL
     Route: 048
  2. ALDACTAZIDE [Suspect]
     Dosage: 1 DOSAGE FORMS, 1 IN 1 D, PER ORAL
     Route: 048
     Dates: end: 20040101
  3. BISOPROLOL FUMARATE [Suspect]
     Dosage: 5 MG, 1 IN 1 D, PER ORAL
     Route: 048

REACTIONS (6)
  - BRADYCARDIA [None]
  - HYPERTENSION [None]
  - INTRACRANIAL INJURY [None]
  - LOSS OF CONSCIOUSNESS [None]
  - MALAISE [None]
  - ORTHOSTATIC HYPOTENSION [None]
